FAERS Safety Report 7268413-0 (Version None)
Quarter: 2011Q1

REPORT INFORMATION
  Report Type: 
  Country: None (occurrence: None)
  Receive Date: 20110201
  Receipt Date: 20110126
  Transmission Date: 20110831
  Serious: Yes (Death)
  Sender: FDA-Public Use
  Company Number: US-PFIZER INC-2011008912

PATIENT
  Sex: Male

DRUGS (3)
  1. REVATIO [Suspect]
     Dosage: 50 MG, 3X/DAY
     Route: 048
     Dates: start: 20100727
  2. REVATIO [Suspect]
     Dosage: UNK
     Route: 048
     Dates: start: 20100610, end: 20100101
  3. REVATIO [Suspect]
     Indication: PULMONARY ARTERIAL HYPERTENSION
     Dosage: 20 MG, 3X/DAY
     Route: 048

REACTIONS (1)
  - PULMONARY HYPERTENSION [None]
